FAERS Safety Report 4842980-6 (Version None)
Quarter: 2005Q4

REPORT INFORMATION
  Report Type: 
  Country: None (occurrence: None)
  Receive Date: 20051201
  Receipt Date: 20050928
  Transmission Date: 20060501
  Serious: Yes (Hospitalization)
  Sender: FDA-Public Use
  Company Number: FR-ROCHE-419256

PATIENT
  Age: 48 Year
  Sex: Male
  Weight: 74.4 kg

DRUGS (9)
  1. DACLIZUMAB [Suspect]
     Route: 042
     Dates: start: 20050503, end: 20050503
  2. DACLIZUMAB [Suspect]
     Route: 042
     Dates: start: 20050517, end: 20050517
  3. MYCOPHENOLATE MOFETIL [Suspect]
     Route: 048
     Dates: start: 20050503
  4. SIROLIMUS [Suspect]
     Route: 048
     Dates: start: 20050729
  5. CYCLOSPORINE [Suspect]
     Route: 065
  6. CORTICOSTEROID NOS [Suspect]
     Route: 048
     Dates: start: 20050503
  7. ROVALCYTE [Concomitant]
     Dates: start: 20050514, end: 20050523
  8. ZELITREX [Concomitant]
     Dates: start: 20050524, end: 20050811
  9. MOPRAL [Concomitant]
     Dates: start: 20050506

REACTIONS (1)
  - CYTOMEGALOVIRUS INFECTION [None]
